FAERS Safety Report 7231423-3 (Version None)
Quarter: 2011Q1

REPORT INFORMATION
  Report Type: 
  Country: None (occurrence: None)
  Receive Date: 20110118
  Receipt Date: 20100115
  Transmission Date: 20110831
  Serious: Yes (Other)
  Sender: FDA-Public Use
  Company Number: CHPA2010US01231

PATIENT
  Age: 82 Year
  Sex: Male
  Weight: 95.238 kg

DRUGS (2)
  1. BUCKLEY'S CHEST CONGESTION [Suspect]
     Dosage: UNK, UNK
     Route: 048
     Dates: start: 20091201, end: 20100114
  2. BUCKLEY'S CHEST CONGESTION [Suspect]
     Indication: COUGH

REACTIONS (2)
  - DRUG INEFFECTIVE [None]
  - PNEUMONIA [None]
